FAERS Safety Report 10052661 (Version 1)
Quarter: 2014Q1

REPORT INFORMATION
  Report Type: Spontaneous
  Country: FR (occurrence: None)
  Receive Date: 20140331
  Receipt Date: 20140331
  Transmission Date: 20141002
  Serious: Yes (Hospitalization)
  Sender: FDA-Public Use
  Company Number: 2014000088

PATIENT
  Age: 87 Year
  Sex: Male

DRUGS (6)
  1. ACEON (PERINDOPRIL ERBUMINE) TABLET [Suspect]
     Indication: HYPERTENSION
     Route: 048
     Dates: start: 201309, end: 20131107
  2. COVERAM [Suspect]
     Indication: HYPERTENSION
     Route: 048
     Dates: start: 20131107, end: 20140217
  3. LOXEN (NICARDIPINE HYDROCHLORIDE) SLOW RELEASE [Suspect]
     Indication: HYPERTENSION
     Route: 048
     Dates: start: 20130719, end: 201309
  4. HYPERIUM (RILMENIDINE PHOSPHATE) [Concomitant]
  5. KEPPRA (LEVETIRACETAM) [Concomitant]
  6. ZEBINIX (ESLICARBAZEPINE ACETATE) [Concomitant]

REACTIONS (3)
  - Rash papular [None]
  - Toxic skin eruption [None]
  - Asthenia [None]
